FAERS Safety Report 7685289-8 (Version None)
Quarter: 2011Q3

REPORT INFORMATION
  Report Type: 
  Country: None (occurrence: None)
  Receive Date: 20110811
  Receipt Date: 20110726
  Transmission Date: 20111222
  Serious: Yes (Hospitalization)
  Sender: FDA-Public Use
  Company Number: PHHY2011JP64765

PATIENT
  Age: 18 Year

DRUGS (1)
  1. TIZANIDINE HYDROCHLORIDE [Suspect]
     Indication: PRODUCT USED FOR UNKNOWN INDICATION
     Dosage: ORAL
     Route: 048

REACTIONS (3)
  - EPSTEIN-BARR VIRUS INFECTION [None]
  - HEPATIC FUNCTION ABNORMAL [None]
  - PYREXIA [None]
